FAERS Safety Report 25419987 (Version 2)
Quarter: 2025Q2

REPORT INFORMATION
  Report Type: Spontaneous
  Country: US (occurrence: US)
  Receive Date: 20250610
  Receipt Date: 20250622
  Transmission Date: 20250717
  Serious: No
  Sender: SANOFI AVENTIS
  Company Number: US-SA-2025SA163825

PATIENT
  Age: 3 Year
  Sex: Male

DRUGS (7)
  1. ALPROLIX [Suspect]
     Active Substance: EFTRENONACOG ALFA
     Indication: Factor IX deficiency
     Dosage: 1250 UNITS (1125-1375), QW FOR PROPHYLAXIS
     Route: 042
     Dates: start: 202307
  2. ALPROLIX [Suspect]
     Active Substance: EFTRENONACOG ALFA
     Indication: Factor IX deficiency
     Dosage: 1250 UNITS (1125-1375), QW FOR PROPHYLAXIS
     Route: 042
     Dates: start: 202307
  3. ALPROLIX [Suspect]
     Active Substance: EFTRENONACOG ALFA
     Dosage: 2000 UNITS (1800-2200) SLOW IV PUSH ONCE FOR MINOR OR MAJOR BLEEDS EVERY 72 HOURS AS NEEDED
     Route: 042
     Dates: start: 202307
  4. ALPROLIX [Suspect]
     Active Substance: EFTRENONACOG ALFA
     Dosage: 2000 UNITS (1800-2200) SLOW IV PUSH ONCE FOR MINOR OR MAJOR BLEEDS EVERY 72 HOURS AS NEEDED
     Route: 042
     Dates: start: 202307
  5. SODIUM CHLORIDE [Concomitant]
     Active Substance: SODIUM CHLORIDE
  6. LIDOCAINE\PRILOCAINE [Concomitant]
     Active Substance: LIDOCAINE\PRILOCAINE
  7. AMINOCAPROIC ACID [Concomitant]
     Active Substance: AMINOCAPROIC ACID

REACTIONS (1)
  - Haemorrhage [Unknown]

NARRATIVE: CASE EVENT DATE: 20250604
